FAERS Safety Report 9681016 (Version 1)
Quarter: 2013Q4

REPORT INFORMATION
  Report Type: Spontaneous
  Country: US (occurrence: US)
  Receive Date: 20131111
  Receipt Date: 20131111
  Transmission Date: 20140711
  Serious: No
  Sender: FDA-Public Use
  Company Number: US-009507513-1311USA003274

PATIENT
  Sex: 0

DRUGS (2)
  1. CHLOR-TRIMETON ALLERGY 4 HOUR TABLETS [Suspect]
     Indication: RHINORRHOEA
     Dosage: UNK, UNKNOWN
     Route: 048
     Dates: start: 20131029
  2. CHLOR-TRIMETON ALLERGY 4 HOUR TABLETS [Suspect]
     Indication: SNEEZING

REACTIONS (1)
  - Drug ineffective [Unknown]
